FAERS Safety Report 5338610-X (Version None)
Quarter: 2007Q2

REPORT INFORMATION
  Report Type: 
  Country: None (occurrence: None)
  Receive Date: 20070530
  Receipt Date: 20070521
  Transmission Date: 20071010
  Serious: Yes (Death, Hospitalization, Other)
  Sender: FDA-Public Use
  Company Number: US-BRISTOL-MYERS SQUIBB COMPANY-13789151

PATIENT
  Age: 68 Year
  Sex: Male

DRUGS (1)
  1. WARFARIN SODIUM [Suspect]
     Indication: ATRIAL FIBRILLATION

REACTIONS (9)
  - CEREBRAL ATROPHY [None]
  - CEREBRAL ISCHAEMIA [None]
  - CONTUSION [None]
  - FALL [None]
  - FUNGAEMIA [None]
  - INTERNATIONAL NORMALISED RATIO ABNORMAL [None]
  - PNEUMONIA [None]
  - QUADRIPLEGIA [None]
  - SPINAL CORD HAEMORRHAGE [None]
